FAERS Safety Report 8617862 (Version 3)
Quarter: 2012Q4

REPORT INFORMATION
  Report Type: 
  Country: AU (occurrence: AU)
  Receive Date: 20120615
  Receipt Date: 20121102
  Transmission Date: 20130627
  Serious: Yes (Death, Hospitalization)
  Sender: FDA-Public Use
  Company Number: AU-JNJFOC-20120604786

PATIENT
  Age: 19 Year
  Sex: Male
  Weight: 70 kg

DRUGS (3)
  1. REMICADE [Suspect]
     Indication: COLITIS ULCERATIVE
     Route: 042
     Dates: start: 201111
  2. REMICADE [Suspect]
     Indication: COLITIS ULCERATIVE
     Dosage: only  2 doses
     Route: 042
     Dates: start: 201111
  3. IMURAN [Concomitant]
     Indication: COLITIS ULCERATIVE
     Dates: start: 201111, end: 201204

REACTIONS (4)
  - Non-Hodgkin^s lymphoma [Fatal]
  - Pancytopenia [Unknown]
  - Neutropenia [Unknown]
  - Pneumonia mycoplasmal [Unknown]
